FAERS Safety Report 8096916-8 (Version None)
Quarter: 2012Q1

REPORT INFORMATION
  Report Type: 
  Country: None (occurrence: None)
  Receive Date: 20120129
  Receipt Date: 20111114
  Transmission Date: 20120608
  Serious: No
  Sender: FDA-Public Use
  Company Number: US-ABBOTT-11P-163-0874545-00

PATIENT
  Sex: Female
  Weight: 83.99 kg

DRUGS (3)
  1. PROZAC [Concomitant]
     Indication: PAIN
  2. HUMIRA [Suspect]
     Indication: PSORIATIC ARTHROPATHY
     Dates: start: 20110101
  3. BENAZEPRIL HYDROCHLORIDE [Concomitant]
     Indication: HYPERTENSION

REACTIONS (6)
  - SPINAL COLUMN STENOSIS [None]
  - OSTEOARTHRITIS [None]
  - INJECTION SITE PAIN [None]
  - PAIN IN EXTREMITY [None]
  - BONE PAIN [None]
  - NERVE COMPRESSION [None]
